FAERS Safety Report 22098388 (Version 1)
Quarter: 2023Q1

REPORT INFORMATION
  Report Type: Spontaneous
  Country: LT (occurrence: LT)
  Receive Date: 20230315
  Receipt Date: 20230315
  Transmission Date: 20230418
  Serious: Yes (Other)
  Sender: FDA-Public Use
  Company Number: LT-BAYER-2023A031423

PATIENT
  Sex: Female

DRUGS (5)
  1. NEXAVAR [Suspect]
     Active Substance: SORAFENIB
     Indication: Hepatocellular carcinoma
     Dosage: 400 MG, BID
     Dates: start: 20210408, end: 20210830
  2. STIVARGA [Suspect]
     Active Substance: REGORAFENIB
     Indication: Hepatocellular carcinoma
     Dosage: 160 MG, QD, FOR 3 WEEKS FOLLOWED BY A 1-WEEK BREAK
     Dates: start: 20210909, end: 20211120
  3. CABOZANTINIB [Concomitant]
     Active Substance: CABOZANTINIB
     Dosage: 60 MG, QD
     Dates: start: 20211125
  4. SPIRONOLACTONE [Concomitant]
     Active Substance: SPIRONOLACTONE
     Dosage: 50 MG, QD
  5. FUROSEMIDE [Concomitant]
     Active Substance: FUROSEMIDE
     Dosage: 40 MG 2 TIMES A WEEK

REACTIONS (8)
  - Hepatocellular carcinoma [None]
  - Hepatocellular carcinoma [None]
  - Metastases to lung [None]
  - Alpha 1 foetoprotein increased [None]
  - Alpha 1 foetoprotein increased [None]
  - Abdominal pain upper [None]
  - Pain [None]
  - Frequent bowel movements [None]
